FAERS Safety Report 21130748 (Version 2)
Quarter: 2022Q4

REPORT INFORMATION
  Report Type: Spontaneous
  Country: IT (occurrence: IT)
  Receive Date: 20220726
  Receipt Date: 20221012
  Transmission Date: 20230112
  Serious: Yes (Death)
  Sender: FDA-Public Use
  Company Number: None

PATIENT
  Age: 54 Year
  Sex: Male
  Weight: 65 kg

DRUGS (7)
  1. CAPECITABINE [Interacting]
     Active Substance: CAPECITABINE
     Indication: Colon cancer stage III
     Dates: start: 20220305, end: 20220315
  2. OXALIPLATIN [Interacting]
     Active Substance: OXALIPLATIN
     Indication: Colon cancer stage III
     Dates: start: 20220304, end: 20220304
  3. PREDNISONE [Concomitant]
     Active Substance: PREDNISONE
  4. Folina [Concomitant]
  5. PANTOPRAZOLE [Concomitant]
     Active Substance: PANTOPRAZOLE
  6. FERROUS SULFATE [Concomitant]
     Active Substance: FERROUS SULFATE
  7. LEVOPRAID [Concomitant]

REACTIONS (9)
  - Anaemia [Fatal]
  - Diarrhoea [Fatal]
  - Gastrointestinal toxicity [Fatal]
  - White blood cell count decreased [Fatal]
  - Mucosal inflammation [Fatal]
  - Haematotoxicity [Fatal]
  - Gastrointestinal mucosal necrosis [Fatal]
  - Thrombocytopenia [Fatal]
  - Drug interaction [Fatal]

NARRATIVE: CASE EVENT DATE: 20220316
